FAERS Safety Report 6756194-6 (Version None)
Quarter: 2010Q2

REPORT INFORMATION
  Report Type: 
  Country: None (occurrence: None)
  Receive Date: 20100604
  Receipt Date: 20100527
  Transmission Date: 20101027
  Serious: Yes (Life-Threatening, Hospitalization)
  Sender: FDA-Public Use
  Company Number: PHHY2010US35276

PATIENT
  Sex: Female

DRUGS (3)
  1. VALTURNA [Suspect]
     Indication: HYPERTENSION
     Dosage: 150/160 MG
     Dates: start: 20100423
  2. TEKTURNA [Suspect]
     Indication: HYPERTENSION
     Dosage: 150 MG
     Dates: start: 20100409, end: 20100501
  3. DIOVAN [Suspect]
     Indication: HYPERTENSION
     Dosage: 160 MG

REACTIONS (3)
  - MALAISE [None]
  - RASH [None]
  - STEVENS-JOHNSON SYNDROME [None]
